FAERS Safety Report 20725616 (Version 2)
Quarter: 2022Q2

REPORT INFORMATION
  Report Type: Report from Study
  Country: US (occurrence: US)
  Receive Date: 20220419
  Receipt Date: 20220622
  Transmission Date: 20220720
  Serious: Yes (Hospitalization, Other)
  Sender: FDA-Public Use
  Company Number: US-BAYER-2022A053149

PATIENT
  Age: 71 Year
  Sex: Male

DRUGS (1)
  1. XOFIGO [Suspect]
     Active Substance: RADIUM RA-223 DICHLORIDE
     Indication: Hormone-refractory prostate cancer
     Dosage: 136.60 ?CI, Q4WK
     Route: 042
     Dates: start: 20220316, end: 20220316

REACTIONS (4)
  - Full blood count abnormal [Unknown]
  - Blood urine present [None]
  - Back pain [None]
  - Haematuria [None]

NARRATIVE: CASE EVENT DATE: 20220317
